FAERS Safety Report 5274290-X (Version None)
Quarter: 2007Q1

REPORT INFORMATION
  Report Type: 
  Country: None (occurrence: None)
  Receive Date: 20070323
  Receipt Date: 20070314
  Transmission Date: 20070707
  Serious: Yes (Other)
  Sender: FDA-Public Use
  Company Number: GB-JNJFOC-20070303951

PATIENT
  Age: 34 Year
  Sex: Female

DRUGS (2)
  1. DAKTACORT [Suspect]
     Indication: DRUG USE FOR UNKNOWN INDICATION
     Route: 061
  2. ANTIHISTAMINE [Concomitant]
     Route: 065

REACTIONS (1)
  - ANAPHYLACTIC REACTION [None]
